FAERS Safety Report 9400684 (Version 1)
Quarter: 2013Q3

REPORT INFORMATION
  Report Type: Spontaneous
  Country: JP (occurrence: None)
  Receive Date: 20130711
  Receipt Date: 20130711
  Transmission Date: 20140515
  Serious: Yes (Other)
  Sender: FDA-Public Use
  Company Number: SYM-2013-05457

PATIENT
  Age: 66 Year
  Sex: Male

DRUGS (6)
  1. FLUOROURACIL (FLUOROURACIL) (FLUOROURACIL) [Suspect]
     Indication: METASTASES TO LIVER
     Dates: start: 2010, end: 201007
  2. OXALIPLATIN (OXALIPLATIN) (OXALIPLATIN) [Suspect]
     Indication: METASTASES TO LIVER
     Dates: start: 2010, end: 2010
  3. FOLINIC ACID [Suspect]
     Indication: METASTASES TO LIVER
     Dates: start: 2010, end: 201007
  4. IRINOTECAN [Suspect]
     Indication: METASTASES TO LIVER
     Dates: start: 2010, end: 201007
  5. BEVACIZUMAB [Suspect]
     Indication: METASTASES TO LIVER
     Dates: start: 2010, end: 2010
  6. GIMERACIL/OTERACIL POTASSIUM/TEGAFUR [Suspect]
     Indication: METASTASES TO LIVER
     Dates: start: 2010, end: 2010

REACTIONS (3)
  - Neuropathy peripheral [None]
  - Condition aggravated [None]
  - Hypoaesthesia [None]
